FAERS Safety Report 19911156 (Version 7)
Quarter: 2022Q2

REPORT INFORMATION
  Report Type: Report from Study
  Country: US (occurrence: US)
  Receive Date: 20211004
  Receipt Date: 20220404
  Transmission Date: 20220721
  Serious: Yes (Other)
  Sender: FDA-Public Use
  Company Number: NVSC2021US221830

PATIENT
  Age: 62 Year
  Sex: Male

DRUGS (8)
  1. ENTRESTO [Suspect]
     Active Substance: SACUBITRIL\VALSARTAN
     Indication: Product used for unknown indication
     Dosage: 1 DF, BID (50 MG)
     Route: 065
     Dates: start: 20210803
  2. ENTRESTO [Suspect]
     Active Substance: SACUBITRIL\VALSARTAN
     Dosage: 1 DOSAGE FORM, BID (24/26 MG)
     Route: 065
     Dates: start: 20210803
  3. METFORMIN [Suspect]
     Active Substance: METFORMIN HYDROCHLORIDE
     Indication: Product used for unknown indication
     Dosage: UNK
     Route: 065
  4. GLIPIZIDE [Suspect]
     Active Substance: GLIPIZIDE
     Indication: Product used for unknown indication
     Dosage: 5 MG, UNKNOWN
     Route: 065
     Dates: start: 202110
  5. COREG [Concomitant]
     Active Substance: CARVEDILOL
     Indication: Product used for unknown indication
     Dosage: UNK (12)
     Route: 065
     Dates: start: 202108
  6. COREG [Concomitant]
     Active Substance: CARVEDILOL
     Dosage: UNK (6) DOSE DECREASED
     Route: 065
     Dates: start: 202108
  7. COREG [Concomitant]
     Active Substance: CARVEDILOL
     Dosage: UNK (12) DOSE INCREASED
     Route: 065
     Dates: start: 20210907
  8. COREG [Concomitant]
     Active Substance: CARVEDILOL
     Dosage: UNK (6) DOSE DECREASED
     Route: 065

REACTIONS (5)
  - Blood pressure diastolic increased [Unknown]
  - Ejection fraction decreased [Unknown]
  - Blood glucose abnormal [Recovering/Resolving]
  - Fatigue [Recovering/Resolving]
  - Pain [Recovering/Resolving]

NARRATIVE: CASE EVENT DATE: 20210901
